FAERS Safety Report 9296170 (Version 2)
Quarter: 2013Q4

REPORT INFORMATION
  Report Type: Spontaneous
  Country: US (occurrence: US)
  Receive Date: 20130517
  Receipt Date: 20131009
  Transmission Date: 20140711
  Serious: Yes (Other)
  Sender: FDA-Public Use
  Company Number: US-PFIZER INC-2013150590

PATIENT
  Age: 82 Year
  Sex: Female
  Weight: 68.03 kg

DRUGS (1)
  1. SILDENAFIL CITRATE [Suspect]
     Indication: PULMONARY HYPERTENSION
     Dosage: 20 MG, 3X/DAY
     Route: 048
     Dates: start: 201301, end: 2013

REACTIONS (2)
  - Pulmonary hypertension [Unknown]
  - Drug ineffective [Unknown]
